FAERS Safety Report 15573069 (Version 1)
Quarter: 2018Q4

REPORT INFORMATION
  Report Type: Spontaneous
  Country: US (occurrence: US)
  Receive Date: 20181031
  Receipt Date: 20181031
  Transmission Date: 20190205
  Serious: Yes (Other)
  Sender: FDA-Public Use
  Company Number: US-SA-2018SA298851

PATIENT
  Sex: Female

DRUGS (2)
  1. NICOTINE. [Suspect]
     Active Substance: NICOTINE
     Indication: PRODUCT USED FOR UNKNOWN INDICATION
     Dosage: 21 MG, UNK
  2. NICOTINE. [Suspect]
     Active Substance: NICOTINE
     Dosage: 21 MG
     Dates: start: 201810

REACTIONS (1)
  - Burns third degree [Unknown]

NARRATIVE: CASE EVENT DATE: 20181023
